FAERS Safety Report 7913697-6 (Version None)
Quarter: 2011Q4

REPORT INFORMATION
  Report Type: 
  Country: None (occurrence: None)
  Receive Date: 20111115
  Receipt Date: 20111107
  Transmission Date: 20120403
  Serious: Yes (Other)
  Sender: FDA-Public Use
  Company Number: JP-JNJFOC-20111104383

PATIENT
  Sex: Male

DRUGS (1)
  1. INVEGA [Suspect]
     Indication: DEPRESSION
     Route: 048
     Dates: start: 20110401, end: 20110601

REACTIONS (5)
  - OFF LABEL USE [None]
  - EJACULATION DISORDER [None]
  - DRUG PRESCRIBING ERROR [None]
  - DEPRESSION [None]
  - BENIGN PROSTATIC HYPERPLASIA [None]
